FAERS Safety Report 7547320-X (Version None)
Quarter: 2011Q2

REPORT INFORMATION
  Report Type: 
  Country: None (occurrence: None)
  Receive Date: 20110614
  Receipt Date: 20110613
  Transmission Date: 20111010
  Serious: Yes (Death)
  Sender: FDA-Public Use
  Company Number: US-PFIZER INC-2008096978

PATIENT
  Sex: Female
  Weight: 90.72 kg

DRUGS (2)
  1. SUNITINIB MALATE [Suspect]
     Indication: BREAST CANCER
     Dosage: 37.5 MG, 1X/DAY
     Route: 048
     Dates: start: 20080816, end: 20080823
  2. CAPECITABINE [Suspect]
     Indication: BREAST CANCER
     Dosage: 2000 MG, 2X/DAY, ON DAY 1-14 EVERY 3 WEEKS
     Route: 048
     Dates: start: 20080816, end: 20080823

REACTIONS (1)
  - DEATH [None]
